FAERS Safety Report 9385909 (Version 1)
Quarter: 2013Q3

REPORT INFORMATION
  Report Type: Report from Study
  Country: US (occurrence: US)
  Receive Date: 20130705
  Receipt Date: 20130705
  Transmission Date: 20140515
  Serious: Yes (Hospitalization)
  Sender: FDA-Public Use
  Company Number: US-GILEAD-2013-0068608

PATIENT
  Age: 35 Year
  Sex: Male

DRUGS (2)
  1. EFAVIRENZ/EMTRICITABINE/TENOFOVIR DISOPROXIL FUMARATE [Suspect]
     Indication: HIV INFECTION
     Dosage: 1 DF, QD
     Dates: start: 20121217, end: 20121218
  2. EFAVIRENZ/EMTRICITABINE/TENOFOVIR DISOPROXIL FUMARATE [Suspect]
     Dosage: 1 UNK, UNK
     Route: 048
     Dates: start: 20130105, end: 20130106

REACTIONS (1)
  - Bronchitis [Recovered/Resolved]
